FAERS Safety Report 7287494-1 (Version None)
Quarter: 2011Q1

REPORT INFORMATION
  Report Type: 
  Country: None (occurrence: None)
  Receive Date: 20110211
  Receipt Date: 20110203
  Transmission Date: 20110831
  Serious: Yes (Hospitalization)
  Sender: FDA-Public Use
  Company Number: FR-BRISTOL-MYERS SQUIBB COMPANY-15532575

PATIENT
  Age: 51 Year
  Sex: Male

DRUGS (2)
  1. COUMADIN [Suspect]
     Indication: THROMBOSIS
     Route: 048
     Dates: end: 20100114
  2. VITAMIN K TAB [Concomitant]
     Dosage: AMPOULE
     Route: 042
     Dates: start: 20110114

REACTIONS (6)
  - DEEP VEIN THROMBOSIS [None]
  - TRAUMATIC HAEMATOMA [None]
  - INTERNATIONAL NORMALISED RATIO INCREASED [None]
  - HAEMORRHAGIC ANAEMIA [None]
  - MUSCLE HAEMORRHAGE [None]
  - ISCHAEMIC STROKE [None]
